FAERS Safety Report 9277076 (Version 1)
Quarter: 2013Q2

REPORT INFORMATION
  Report Type: Spontaneous
  Country: US (occurrence: US)
  Receive Date: 20130507
  Receipt Date: 20130507
  Transmission Date: 20140414
  Serious: No
  Sender: FDA-Public Use
  Company Number: US-009507513-1305USA001058

PATIENT
  Age: 74 Year
  Sex: Female

DRUGS (2)
  1. ZETIA [Suspect]
     Indication: BLOOD CHOLESTEROL INCREASED
     Dosage: 10 MG, QD
     Route: 048
     Dates: start: 2013, end: 201304
  2. SYNTHROID [Concomitant]

REACTIONS (2)
  - Local swelling [Recovering/Resolving]
  - Pain in extremity [Recovering/Resolving]
